FAERS Safety Report 7086167-8 (Version None)
Quarter: 2010Q4

REPORT INFORMATION
  Report Type: 
  Country: None (occurrence: None)
  Receive Date: 20101105
  Receipt Date: 20101026
  Transmission Date: 20110411
  Serious: Yes (Hospitalization)
  Sender: FDA-Public Use
  Company Number: US-BRACCO-005407

PATIENT
  Sex: Female

DRUGS (2)
  1. MULTIHANCE [Suspect]
     Indication: AORTIC ANEURYSM
     Route: 042
     Dates: start: 20100929, end: 20100929
  2. MULTIHANCE [Suspect]
     Indication: ANGIOGRAM
     Route: 042
     Dates: start: 20100929, end: 20100929

REACTIONS (6)
  - ARTHRALGIA [None]
  - CONVULSION [None]
  - MEMORY IMPAIRMENT [None]
  - OFF LABEL USE [None]
  - ROAD TRAFFIC ACCIDENT [None]
  - VISUAL IMPAIRMENT [None]
